FAERS Safety Report 4738181-2 (Version None)
Quarter: 2005Q3

REPORT INFORMATION
  Report Type: 
  Country: None (occurrence: None)
  Receive Date: 20050802
  Receipt Date: 20050721
  Transmission Date: 20060218
  Serious: Yes (Death, Hospitalization)
  Sender: FDA-Public Use
  Company Number: THYM-10645

PATIENT
  Sex: Male

DRUGS (6)
  1. THYMOGLOBULIN [Suspect]
     Indication: HEART TRANSPLANT
     Dosage: 2.5 MG/KG QD X 5 IV
     Route: 042
  2. CYCLOSPORINE [Concomitant]
  3. AZATHIOPRINE [Concomitant]
  4. METHYLPREDNISOLONE [Concomitant]
  5. CORTICOSTEROID [Concomitant]
  6. CEFAMANDOLE NAFATE [Concomitant]

REACTIONS (8)
  - BODY TEMPERATURE INCREASED [None]
  - COMPLICATIONS OF TRANSPLANT SURGERY [None]
  - GRAFT DYSFUNCTION [None]
  - MEDIASTINITIS [None]
  - POST PROCEDURAL HAEMORRHAGE [None]
  - SEPSIS [None]
  - SHOCK [None]
  - VASCULAR RESISTANCE SYSTEMIC DECREASED [None]
